FAERS Safety Report 16108627 (Version 4)
Quarter: 2019Q2

REPORT INFORMATION
  Report Type: Report from Study
  Country: GB (occurrence: GB)
  Receive Date: 20190323
  Receipt Date: 20190607
  Transmission Date: 20190711
  Serious: Yes (Death, Hospitalization, Other)
  Sender: FDA-Public Use
  Company Number: GB-CELLTRION INC.-2019GB019508

PATIENT

DRUGS (4)
  1. TRUXIMA [Suspect]
     Active Substance: RITUXIMAB-ABBS
     Indication: DIFFUSE LARGE B-CELL LYMPHOMA
     Dosage: 700 MG (GIVEN AS PART OF RCHOP)
     Route: 042
     Dates: start: 20180605
  2. TRUXIMA [Suspect]
     Active Substance: RITUXIMAB-ABBS
     Dosage: UNK, (AS PART OF R-GEMOX SD)
     Route: 042
     Dates: start: 20181210
  3. CHOP [Suspect]
     Active Substance: CYCLOPHOSPHAMIDE\DOXORUBICIN\PREDNISONE\VINCRISTINE
     Indication: DIFFUSE LARGE B-CELL LYMPHOMA
     Dosage: UNK
  4. GEMOX                              /08454001/ [Suspect]
     Active Substance: GEMCITABINE HYDROCHLORIDE\OXALIPLATIN
     Indication: DIFFUSE LARGE B-CELL LYMPHOMA
     Dosage: UNK

REACTIONS (15)
  - Second primary malignancy [Fatal]
  - Chest pain [Fatal]
  - Chest discomfort [Fatal]
  - Cough [Fatal]
  - B-cell lymphoma [Fatal]
  - Neoplasm progression [Fatal]
  - Restlessness [Fatal]
  - Post procedural haemorrhage [Fatal]
  - Platelet count decreased [Fatal]
  - Tumour lysis syndrome [Fatal]
  - Vomiting [Fatal]
  - Hyperkalaemia [Fatal]
  - Diarrhoea [Fatal]
  - Acute kidney injury [Fatal]
  - Gastric dilatation [Fatal]

NARRATIVE: CASE EVENT DATE: 20180605
